FAERS Safety Report 9791359 (Version 2)
Quarter: 2014Q1

REPORT INFORMATION
  Report Type: Spontaneous
  Country: GB (occurrence: GB)
  Receive Date: 20140101
  Receipt Date: 20140122
  Transmission Date: 20141002
  Serious: Yes (Other)
  Sender: FDA-Public Use
  Company Number: GB-ASTRAZENECA-2013SE93509

PATIENT
  Age: 78 Year
  Sex: Female
  Weight: 75 kg

DRUGS (16)
  1. OMEPRAZOLE [Suspect]
     Route: 048
  2. BISOPROLOL [Interacting]
     Route: 065
  3. DEXDOR [Interacting]
     Indication: SEDATION
     Route: 065
     Dates: start: 20131218, end: 20131222
  4. ERYTHROMYCIN [Interacting]
     Indication: GASTROINTESTINAL MOTILITY DISORDER
     Route: 065
     Dates: start: 20131216, end: 20131220
  5. CO-AMOXICLAV [Concomitant]
     Dates: start: 20131210, end: 20131217
  6. ENOXAPARIN [Concomitant]
  7. FUROSEMIDE [Concomitant]
  8. GABAPENTIN [Concomitant]
  9. PANTOPRAZOLE [Concomitant]
  10. PARACETAMOL [Concomitant]
  11. LANSOPRAZOLE [Concomitant]
  12. NORADRENALINE [Concomitant]
  13. PERINDOPRIL [Concomitant]
  14. PROPOFOL [Concomitant]
  15. REMIFENTANIL [Concomitant]
  16. RIVAROXABAN [Concomitant]

REACTIONS (4)
  - Drug interaction [Unknown]
  - Alanine aminotransferase increased [Recovered/Resolved]
  - Aspartate aminotransferase increased [Recovered/Resolved]
  - Blood bilirubin increased [Recovered/Resolved]
